FAERS Safety Report 7494363-0 (Version None)
Quarter: 2011Q2

REPORT INFORMATION
  Report Type: 
  Country: None (occurrence: None)
  Receive Date: 20110520
  Receipt Date: 20110509
  Transmission Date: 20111010
  Serious: Yes (Other)
  Sender: FDA-Public Use
  Company Number: US-MERCK-1103USA02685

PATIENT
  Age: 74 Year
  Sex: Female

DRUGS (11)
  1. FOSAMAX [Suspect]
     Indication: OSTEOPOROSIS
     Route: 048
     Dates: start: 19970314, end: 20000510
  2. FOSAMAX [Suspect]
     Route: 048
     Dates: start: 20010321, end: 20070325
  3. VITAMINS (UNSPECIFIED) [Concomitant]
     Route: 065
     Dates: start: 19960101
  4. FOSAMAX [Suspect]
     Indication: OSTEOPENIA
     Route: 048
     Dates: start: 19970314, end: 20000510
  5. CALCIUM (UNSPECIFIED) [Concomitant]
     Route: 065
     Dates: start: 19960101
  6. ALENDRONATE SODIUM [Suspect]
     Indication: OSTEOPOROSIS
     Route: 048
     Dates: start: 20080325, end: 20100801
  7. FOSAMAX [Suspect]
     Route: 048
     Dates: start: 20100719
  8. FOSAMAX [Suspect]
     Route: 048
     Dates: start: 20010321, end: 20070325
  9. CALCIUM CARBONATE [Concomitant]
     Route: 065
     Dates: start: 19960101
  10. OMEGA-3 MARINE TRIGLYCERIDES [Concomitant]
     Route: 065
     Dates: start: 19960101
  11. FOSAMAX [Suspect]
     Route: 048
     Dates: start: 20100719

REACTIONS (11)
  - TIBIA FRACTURE [None]
  - EATING DISORDER [None]
  - HYPERTENSION [None]
  - SKIN CANCER [None]
  - TOOTH DISORDER [None]
  - DISCOMFORT [None]
  - BLOOD CHOLESTEROL INCREASED [None]
  - BONE LOSS [None]
  - GASTROOESOPHAGEAL REFLUX DISEASE [None]
  - BONE DENSITY DECREASED [None]
  - TOOTH INFECTION [None]
